FAERS Safety Report 22798551 (Version 6)
Quarter: 2023Q4

REPORT INFORMATION
  Report Type: Spontaneous
  Country: US (occurrence: US)
  Receive Date: 20230808
  Receipt Date: 20231115
  Transmission Date: 20240110
  Serious: No
  Sender: FDA-Public Use
  Company Number: US-PFIZER INC-PV202300132096

PATIENT
  Age: 13 Year
  Sex: Male
  Weight: 36.29 kg

DRUGS (1)
  1. GENOTROPIN [Suspect]
     Active Substance: SOMATROPIN
     Indication: Growth hormone deficiency
     Dosage: UNK, [2.4M 2MG 6 DAYS PER WEEK]
     Dates: start: 202307

REACTIONS (6)
  - Product communication issue [Unknown]
  - Drug dose omission by device [Unknown]
  - Accidental exposure to product [Unknown]
  - Exposure via skin contact [Unknown]
  - Device delivery system issue [Unknown]
  - Device breakage [Unknown]
